FAERS Safety Report 19067824 (Version 1)
Quarter: 2021Q1

REPORT INFORMATION
  Report Type: Spontaneous
  Country: CN (occurrence: CN)
  Receive Date: 20210329
  Receipt Date: 20210329
  Transmission Date: 20210420
  Serious: Yes (Hospitalization, Other)
  Sender: FDA-Public Use
  Company Number: CN-PFIZER INC-2021307752

PATIENT
  Age: 2 Year
  Sex: Male
  Weight: 11.5 kg

DRUGS (14)
  1. CYTOSAR [Suspect]
     Active Substance: CYTARABINE
     Dosage: 0.025 G, WEEKLY (ONCE EVERY 7 DAYS)
     Route: 037
     Dates: end: 20210306
  2. MERCAPTOPURINE. [Suspect]
     Active Substance: MERCAPTOPURINE
     Indication: CHEMOTHERAPY
     Dosage: 25 MG, ONCE DAILY
     Route: 048
     Dates: start: 20210225, end: 20210307
  3. SODIUM CHLORIDE 0.9% [Concomitant]
     Active Substance: SODIUM CHLORIDE
     Dosage: 10 ML, ONCE DAILY
     Route: 042
     Dates: end: 20210309
  4. AZATHIOPRINE. [Concomitant]
     Active Substance: AZATHIOPRINE
     Dosage: 50 MG, AS NEEDED (DAY 12 TO 16)
     Route: 048
  5. SODIUM CHLORIDE 0.9% [Concomitant]
     Active Substance: SODIUM CHLORIDE
     Indication: VEHICLE SOLUTION USE
     Dosage: 100 ML, ONCE DAILY
     Route: 041
     Dates: start: 20210225, end: 20210225
  6. SODIUM CHLORIDE 0.9% [Concomitant]
     Active Substance: SODIUM CHLORIDE
     Indication: VEHICLE SOLUTION USE
     Dosage: 20 ML, ONCE DAILY
     Route: 042
     Dates: start: 20210227, end: 20210302
  7. CYTOSAR [Suspect]
     Active Substance: CYTARABINE
     Dosage: 0.038 G, ONCE DAILY
     Route: 042
     Dates: end: 20210309
  8. SODIUM CHLORIDE 0.9% [Concomitant]
     Active Substance: SODIUM CHLORIDE
     Dosage: 6 ML, WEEKLY (ONCE EVERY 7DAYS)
     Route: 037
     Dates: end: 20210306
  9. DEXAMETHASONE SODIUM PHOSPHATE. [Concomitant]
     Active Substance: DEXAMETHASONE SODIUM PHOSPHATE
     Indication: CHEMOTHERAPY
     Dosage: 5 MG, WEEKLY (ONCE EVERY 7 DAYS)
     Route: 037
     Dates: start: 20210227, end: 20210306
  10. METHOTREXATE. [Suspect]
     Active Substance: METHOTREXATE
     Indication: CHEMOTHERAPY
     Dosage: 10 MG, WEEKLY (ONCE EVERY 7 DAYS)
     Route: 037
     Dates: start: 20210227, end: 20210306
  11. AZATHIOPRINE. [Concomitant]
     Active Substance: AZATHIOPRINE
     Indication: CHEMOTHERAPY
     Dosage: 25 MG, AS NEEDED (DAY 1 TO 11)
     Route: 048
  12. MERCAPTOPURINE. [Suspect]
     Active Substance: MERCAPTOPURINE
     Dosage: 50 MG, ONCE DAILY
     Route: 048
     Dates: start: 20210308, end: 20210312
  13. ENDOXAN [CYCLOPHOSPHAMIDE] [Suspect]
     Active Substance: CYCLOPHOSPHAMIDE
     Indication: CHEMOTHERAPY
     Dosage: 0.503 G, ONCE DAILY
     Route: 041
     Dates: start: 20210225, end: 20210225
  14. CYTOSAR [Suspect]
     Active Substance: CYTARABINE
     Indication: CHEMOTHERAPY
     Dosage: 0.038 G, ONCE DAILY
     Route: 042
     Dates: start: 20210227, end: 20210302

REACTIONS (1)
  - Myelosuppression [Unknown]

NARRATIVE: CASE EVENT DATE: 20210313
